FAERS Safety Report 8990192 (Version 1)
Quarter: 2012Q4

REPORT INFORMATION
  Report Type: 
  Country: ZA (occurrence: ZA)
  Receive Date: 20121228
  Receipt Date: 20121228
  Transmission Date: 20130627
  Serious: Yes (Death)
  Sender: FDA-Public Use
  Company Number: ZA-PFIZER INC-2012329814

PATIENT
  Age: 31 Year
  Sex: Male

DRUGS (4)
  1. SIROLIMUS [Suspect]
     Dosage: UNK
  2. MYCOPHENOLATE MOFETIL [Concomitant]
  3. PREDNISONE [Concomitant]
     Dosage: UNK
  4. RIFAMPICIN [Concomitant]
     Indication: TUBERCULOSIS

REACTIONS (1)
  - Post transplant lymphoproliferative disorder [Fatal]
